FAERS Safety Report 10466185 (Version 1)
Quarter: 2014Q3

REPORT INFORMATION
  Report Type: Spontaneous
  Country: US (occurrence: None)
  Receive Date: 20140919
  Receipt Date: 20140919
  Transmission Date: 20150326
  Serious: Yes (Other)
  Sender: FDA-Public Use
  Company Number: None

PATIENT
  Age: 68 Year
  Sex: Female
  Weight: 63.4 kg

DRUGS (2)
  1. METHYLPREDNISOLONE [Concomitant]
     Active Substance: METHYLPREDNISOLONE
  2. FLEBOGAMMA DIF [Suspect]
     Active Substance: HUMAN IMMUNOGLOBULIN G
     Indication: MYASTHENIA GRAVIS
     Dosage: 25 GRAMS, DAILY X 5 DOSES, INTRAVENOUS
     Route: 042
     Dates: start: 20140623, end: 20140627

REACTIONS (5)
  - Pyrexia [None]
  - Muscle rigidity [None]
  - Tachycardia [None]
  - Hypertension [None]
  - Infusion related reaction [None]

NARRATIVE: CASE EVENT DATE: 20140623
